FAERS Safety Report 12634045 (Version 1)
Quarter: 2016Q3

REPORT INFORMATION
  Report Type: Spontaneous
  Country: US (occurrence: None)
  Receive Date: 20160808
  Receipt Date: 20160808
  Transmission Date: 20161109
  Serious: Yes (Death, Hospitalization)
  Sender: FDA-Public Use
  Company Number: None

PATIENT
  Age: 52 Year
  Sex: Female
  Weight: 83 kg

DRUGS (3)
  1. DOXORUBICIN HYDROCHLORIDE. [Suspect]
     Active Substance: DOXORUBICIN HYDROCHLORIDE
     Dates: end: 20140821
  2. TAXOL [Suspect]
     Active Substance: PACLITAXEL
     Dates: end: 20141016
  3. CYCLOPHOSPHAMIDE. [Suspect]
     Active Substance: CYCLOPHOSPHAMIDE
     Dates: end: 20140821

REACTIONS (15)
  - Pneumonia [None]
  - Acute kidney injury [None]
  - Cardiomyopathy [None]
  - Ischaemic hepatitis [None]
  - Neuropathy peripheral [None]
  - Cyanosis [None]
  - Lumbar spinal stenosis [None]
  - Dyspnoea [None]
  - Respiratory failure [None]
  - Multiple organ dysfunction syndrome [None]
  - Sepsis [None]
  - Cardiogenic shock [None]
  - Back pain [None]
  - Oedema [None]
  - Ejection fraction decreased [None]

NARRATIVE: CASE EVENT DATE: 20150821
